FAERS Safety Report 5370595-2 (Version None)
Quarter: 2007Q2

REPORT INFORMATION
  Report Type: 
  Country: None (occurrence: None)
  Receive Date: 20070622
  Receipt Date: 20070618
  Transmission Date: 20071010
  Serious: Yes (Life-Threatening)
  Sender: FDA-Public Use
  Company Number: 2007S1000125

PATIENT
  Age: 4 Day
  Sex: Male
  Weight: 1.04 kg

DRUGS (5)
  1. NITRIC OXIDE [Suspect]
     Indication: LUNG DISORDER
     Dosage: 5 PPM; CONT; INH
     Route: 055
     Dates: start: 20070515, end: 20070526
  2. NITRIC OXIDE [Suspect]
     Indication: PROPHYLAXIS
     Dosage: 5 PPM; CONT; INH
     Route: 055
     Dates: start: 20070515, end: 20070526
  3. AMPLITAL [Concomitant]
  4. LUKASM [Concomitant]
  5. REMIFENTANIL [Concomitant]

REACTIONS (4)
  - GENERAL PHYSICAL HEALTH DETERIORATION [None]
  - INTESTINAL PERFORATION [None]
  - NECROTISING ENTEROCOLITIS NEONATAL [None]
  - NEONATAL DISORDER [None]
